FAERS Safety Report 4368766-7 (Version None)
Quarter: 2004Q2

REPORT INFORMATION
  Report Type: 
  Country: None (occurrence: None)
  Receive Date: 20040525
  Receipt Date: 20040509
  Transmission Date: 20050107
  Serious: Yes (Other)
  Sender: FDA-Public Use
  Company Number: DSA_24378_2004

PATIENT
  Sex: Female

DRUGS (1)
  1. LORAZEPAM [Suspect]
     Dosage: 1 MG Q DAY PO
     Route: 048

REACTIONS (2)
  - DERMATITIS [None]
  - SYSTEMIC LUPUS ERYTHEMATOSUS [None]
